FAERS Safety Report 8610636-X (Version None)
Quarter: 2012Q3

REPORT INFORMATION
  Report Type: 
  Country: None (occurrence: None)
  Receive Date: 20120808
  Receipt Date: 20120725
  Transmission Date: 20120928
  Serious: Yes (Other)
  Sender: FDA-Public Use
  Company Number: JPI-P-022929

PATIENT
  Age: 52 Year
  Sex: Female

DRUGS (4)
  1. XYREM [Suspect]
     Indication: HYPERSOMNIA
     Dosage: 4.5 GM (2.25 GM, 2 IN 1 D), ORAL; UNSPECIFIED TITRATING DOSE, ORAL; 7.5 GM (3.75 GM, 2 IN 1 D), ORAL
     Route: 048
     Dates: start: 20091217
  2. XYREM [Suspect]
     Indication: HYPERSOMNIA
     Dosage: 4.5 GM (2.25 GM, 2 IN 1 D), ORAL; UNSPECIFIED TITRATING DOSE, ORAL; 7.5 GM (3.75 GM, 2 IN 1 D), ORAL
     Route: 048
     Dates: start: 20100520
  3. AMPHETAMINE, DEXTROAMPHETAMINE MIXED SALTS [Suspect]
     Indication: PRODUCT USED FOR UNKNOWN INDICATION
  4. MODAFINIL [Concomitant]

REACTIONS (5)
  - TRANSIENT ISCHAEMIC ATTACK [None]
  - NIGHT SWEATS [None]
  - BLOOD PRESSURE INCREASED [None]
  - HEADACHE [None]
  - OEDEMA PERIPHERAL [None]
